FAERS Safety Report 6443058-0 (Version None)
Quarter: 2009Q4

REPORT INFORMATION
  Report Type: 
  Country: None (occurrence: None)
  Receive Date: 20091117
  Receipt Date: 20091103
  Transmission Date: 20100525
  Serious: Yes (Hospitalization)
  Sender: FDA-Public Use
  Company Number: US-SANOFI-AVENTIS-200919337US

PATIENT
  Age: 77 Year
  Sex: Female
  Weight: 58.18 kg

DRUGS (9)
  1. DOLASETRON MESILATE [Suspect]
     Indication: NAUSEA
     Dosage: DOSE AS USED: 100 MG IN 50 ML SALINE OVER 10 MIN
     Route: 042
     Dates: start: 20091002, end: 20091002
  2. DOLASETRON MESILATE [Suspect]
     Indication: VOMITING
     Dosage: DOSE AS USED: 100 MG IN 50 ML SALINE OVER 10 MIN
     Route: 042
     Dates: start: 20091002, end: 20091002
  3. DOLASETRON MESILATE [Suspect]
     Route: 042
     Dates: start: 20090812, end: 20091002
  4. DOLASETRON MESILATE [Suspect]
     Route: 042
     Dates: start: 20090812, end: 20091002
  5. DEXAMETHASONE [Suspect]
     Indication: NAUSEA
     Route: 042
     Dates: start: 20091002, end: 20091002
  6. DEXAMETHASONE [Suspect]
     Indication: VOMITING
     Route: 042
     Dates: start: 20091002, end: 20091002
  7. GEMZAAR [Concomitant]
     Indication: NON-HODGKIN'S LYMPHOMA
     Dosage: DOSE AS USED: UNK
     Dates: start: 20091002
  8. APAP TAB [Concomitant]
     Route: 065
  9. RITUXAN [Concomitant]
     Route: 065

REACTIONS (2)
  - ACUTE MYOCARDIAL INFARCTION [None]
  - RESUSCITATION [None]
